FAERS Safety Report 21770549 (Version 3)
Quarter: 2025Q3

REPORT INFORMATION
  Report Type: Spontaneous
  Country: CA (occurrence: CA)
  Receive Date: 20221223
  Receipt Date: 20250802
  Transmission Date: 20251020
  Serious: Yes (Hospitalization, Other)
  Sender: ALEXION PHARMACEUTICALS
  Company Number: 2022A412900

PATIENT
  Age: 81 Year
  Sex: Female

DRUGS (12)
  1. BUDESONIDE [Suspect]
     Active Substance: BUDESONIDE
     Indication: Product used for unknown indication
     Route: 065
  2. CICLESONIDE [Suspect]
     Active Substance: CICLESONIDE
     Indication: Product used for unknown indication
     Route: 065
  3. AZTREONAM [Suspect]
     Active Substance: AZTREONAM
     Indication: Product used for unknown indication
     Route: 065
  4. MEPOLIZUMAB [Suspect]
     Active Substance: MEPOLIZUMAB
     Route: 065
  5. INDACATEROL [Suspect]
     Active Substance: INDACATEROL
     Indication: Product used for unknown indication
     Dosage: 1 DOSAGE FORM, QD
     Route: 065
  6. PULMOZYME [Suspect]
     Active Substance: DORNASE ALFA
     Indication: Product used for unknown indication
     Route: 065
  7. QVAR [Suspect]
     Active Substance: BECLOMETHASONE DIPROPIONATE
     Indication: Product used for unknown indication
     Dosage: 2 DOSAGE FORM, QD
  8. ALBUTEROL [Suspect]
     Active Substance: ALBUTEROL
     Indication: Asthma
  9. ALBUTEROL [Suspect]
     Active Substance: ALBUTEROL
     Indication: Product used for unknown indication
  10. ALBUTEROL [Suspect]
     Active Substance: ALBUTEROL
     Route: 065
  11. TYLENOL [Suspect]
     Active Substance: ACETAMINOPHEN
     Indication: Product used for unknown indication
     Route: 065
  12. VANCOMYCIN [Suspect]
     Active Substance: VANCOMYCIN
     Indication: Product used for unknown indication
     Route: 065

REACTIONS (32)
  - Asthma [Unknown]
  - Atelectasis [Unknown]
  - Atrial fibrillation [Unknown]
  - Bacterial disease carrier [Unknown]
  - Blood pressure increased [Unknown]
  - Bronchial secretion retention [Unknown]
  - Drug intolerance [Unknown]
  - Dyspnoea [Unknown]
  - Eosinophilia [Unknown]
  - Fall [Unknown]
  - General physical health deterioration [Unknown]
  - Heart rate increased [Unknown]
  - Illness [Unknown]
  - Impaired quality of life [Unknown]
  - Loss of personal independence in daily activities [Unknown]
  - Myalgia [Unknown]
  - Nonspecific reaction [Unknown]
  - Pain [Unknown]
  - Palpitations [Unknown]
  - Rib fracture [Unknown]
  - Scoliosis [Unknown]
  - Sinus operation [Unknown]
  - Sleep disorder due to a general medical condition [Unknown]
  - Superinfection [Unknown]
  - Therapeutic product effect incomplete [Unknown]
  - Treatment noncompliance [Unknown]
  - Wheezing [Unknown]
  - Adverse drug reaction [Unknown]
  - Anxiety [Unknown]
  - Bronchospasm [Unknown]
  - Drug hypersensitivity [Unknown]
  - Aggression [Unknown]
